FAERS Safety Report 17268504 (Version 1)
Quarter: 2020Q1

REPORT INFORMATION
  Report Type: Spontaneous
  Country: US (occurrence: US)
  Receive Date: 20200114
  Receipt Date: 20200114
  Transmission Date: 20200409
  Serious: Yes (Death, Hospitalization)
  Sender: FDA-Public Use
  Company Number: US-BAYER-2020-003267

PATIENT
  Age: 22 Year
  Sex: Female

DRUGS (4)
  1. HEROIN [Suspect]
     Active Substance: DIAMORPHINE
  2. COCAINE [Suspect]
     Active Substance: COCAINE
  3. MARIJUANA [Suspect]
     Active Substance: CANNABIS SATIVA SUBSP. INDICA TOP
  4. PARACETAMOL + CHLORPHENIRAMINE MALEATE + DEXTROMETHORPHAN [Suspect]
     Active Substance: ACETAMINOPHEN\CHLORPHENIRAMINE\DEXTROMETHORPHAN
     Route: 048

REACTIONS (2)
  - Toxicity to various agents [Fatal]
  - Drug abuse [Fatal]
